FAERS Safety Report 9506810 (Version 1)
Quarter: 2013Q3

REPORT INFORMATION
  Report Type: Spontaneous
  Country: US (occurrence: US)
  Receive Date: 20130909
  Receipt Date: 20130909
  Transmission Date: 20140515
  Serious: Yes (Death)
  Sender: FDA-Public Use
  Company Number: US-BIOGENIDEC-2013BI084275

PATIENT
  Sex: Male

DRUGS (8)
  1. AVONEX [Suspect]
     Indication: MULTIPLE SCLEROSIS
     Route: 030
     Dates: start: 20060906
  2. ASPIRIN BUFFERED [Concomitant]
  3. COLCHICINE [Concomitant]
  4. CRESTOR [Concomitant]
  5. ENALAPRIL MALEATE [Concomitant]
  6. NADOLOL [Concomitant]
  7. TRIAMTERENE-HCTZ [Concomitant]
  8. VITAMIN B-12 [Concomitant]

REACTIONS (1)
  - Death [Fatal]
